FAERS Safety Report 16522087 (Version 1)
Quarter: 2019Q3

REPORT INFORMATION
  Report Type: Spontaneous
  Country: CN (occurrence: CN)
  Receive Date: 20190703
  Receipt Date: 20190703
  Transmission Date: 20191004
  Serious: Yes (Life-Threatening, Hospitalization, Other)
  Sender: FDA-Public Use
  Company Number: CN-ROCHE-2345651

PATIENT
  Age: 60 Year
  Sex: Male

DRUGS (15)
  1. OXALIPLATIN. [Concomitant]
     Active Substance: OXALIPLATIN
     Indication: COLON CANCER
     Dosage: D1 Q3W
     Route: 042
     Dates: start: 20160825, end: 20181006
  2. FLUOROURACIL. [Concomitant]
     Active Substance: FLUOROURACIL
     Dosage: 9TH TO 13TH CYCLE WITH BEVACIZUMAB
     Route: 065
     Dates: start: 20170213, end: 20170510
  3. IRINOTECAN [Concomitant]
     Active Substance: IRINOTECAN
     Indication: ADENOCARCINOMA
     Route: 065
     Dates: start: 20180503
  4. FLUOROURACIL. [Concomitant]
     Active Substance: FLUOROURACIL
     Indication: COLON CANCER
     Dosage: 5TH CYCLE TO THE 7TH CYCLE WITH BEVACIZUMAB
     Route: 065
     Dates: start: 20161119, end: 20170102
  5. FLUOROURACIL. [Concomitant]
     Active Substance: FLUOROURACIL
     Dosage: 16TH TO 18TH CYCLE WITH BEVACIZUMAB
     Route: 065
     Dates: start: 20170712, end: 20170923
  6. LOBAPLATIN [Concomitant]
     Active Substance: LOBAPLATIN
     Indication: ADENOCARCINOMA
     Route: 065
     Dates: start: 201712
  7. AVASTIN [Suspect]
     Active Substance: BEVACIZUMAB
     Indication: COLON CANCER
     Dosage: 5 TH TO 7TH CYCLE WITH 5-FLUROURACIL
     Route: 065
     Dates: start: 20161119, end: 20170102
  8. FLUOROURACIL. [Concomitant]
     Active Substance: FLUOROURACIL
     Dosage: 8TH CYCLE WITH BEVACIZUMAB
     Route: 065
     Dates: start: 20170123
  9. RALTITREXED [Concomitant]
     Active Substance: RALTITREXED
     Indication: ADENOCARCINOMA
     Route: 065
     Dates: start: 201712
  10. AVASTIN [Suspect]
     Active Substance: BEVACIZUMAB
     Indication: METASTASES TO ADRENALS
     Dosage: 8TH CYCLE WITH 5-FLUROURACIL
     Route: 065
     Dates: start: 20170123, end: 20170510
  11. XELODA [Suspect]
     Active Substance: CAPECITABINE
     Indication: COLON CANCER
     Dosage: BID FROM D1 TO D14 Q3W
     Route: 065
     Dates: start: 20160825, end: 20161114
  12. AVASTIN [Suspect]
     Active Substance: BEVACIZUMAB
     Dosage: 9TH TO 13TH CYCLE WITH 5-FLUROURANIL
     Route: 065
     Dates: start: 20170213, end: 20170510
  13. AVASTIN [Suspect]
     Active Substance: BEVACIZUMAB
     Dosage: 16TH TO 18TH CYCLE WITH 5-FLUROURACIL
     Route: 065
     Dates: start: 20170712, end: 20170923
  14. XELODA [Suspect]
     Active Substance: CAPECITABINE
     Indication: METASTASES TO ADRENALS
     Dosage: BID FROM D1 TO D14 Q3W
     Route: 065
     Dates: start: 20170529, end: 20170621
  15. OXALIPLATIN. [Concomitant]
     Active Substance: OXALIPLATIN
     Dosage: D1 Q3W
     Route: 042
     Dates: start: 20181027

REACTIONS (15)
  - Pyrexia [Unknown]
  - Alopecia [Unknown]
  - Nausea [Unknown]
  - Rash [Unknown]
  - Tumour marker increased [Unknown]
  - Bone marrow failure [Unknown]
  - Asthenia [Unknown]
  - Diarrhoea [Unknown]
  - Proteinuria [Not Recovered/Not Resolved]
  - Septic shock [Recovering/Resolving]
  - Lung infection [Unknown]
  - Pneumonia [Recovering/Resolving]
  - Respiratory failure [Recovering/Resolving]
  - Vomiting [Unknown]
  - Mouth ulceration [Unknown]
